FAERS Safety Report 7250296-6 (Version None)
Quarter: 2011Q1

REPORT INFORMATION
  Report Type: 
  Country: None (occurrence: None)
  Receive Date: 20110128
  Receipt Date: 20110118
  Transmission Date: 20110831
  Serious: Yes (Other)
  Sender: FDA-Public Use
  Company Number: US-ALLERGAN-1015713US

PATIENT
  Age: 76 Year
  Sex: Female

DRUGS (2)
  1. REFRESH PLUS [Suspect]
     Route: 047
  2. REFRESH PLUS [Suspect]
     Indication: DRY EYE
     Dosage: 1 GTT, QHS
     Route: 047
     Dates: start: 20101101, end: 20101101

REACTIONS (3)
  - EYE DISCHARGE [None]
  - EYE PAIN [None]
  - EYE INFECTION [None]
